FAERS Safety Report 10560918 (Version 1)
Quarter: 2014Q4

REPORT INFORMATION
  Report Type: Spontaneous
  Country: US (occurrence: US)
  Receive Date: 20141103
  Receipt Date: 20141103
  Transmission Date: 20150529
  Serious: No
  Sender: FDA-Public Use
  Company Number: US-ENDO PHARMACEUTICALS INC.-PNIS20140001

PATIENT
  Sex: Female

DRUGS (1)
  1. PREDNISOLONE ORAL SOLUTION [Suspect]
     Active Substance: PREDNISOLONE
     Indication: COLITIS ULCERATIVE
     Dosage: UNK
     Route: 048
     Dates: start: 201402

REACTIONS (2)
  - Incorrect product storage [Unknown]
  - Drug ineffective [Unknown]

NARRATIVE: CASE EVENT DATE: 2014
